FAERS Safety Report 18945713 (Version 1)
Quarter: 2021Q1

REPORT INFORMATION
  Report Type: Report from Study
  Country: CA (occurrence: CA)
  Receive Date: 20210226
  Receipt Date: 20210226
  Transmission Date: 20210420
  Serious: Yes (Death, Life-Threatening, Hospitalization, Other)
  Sender: FDA-Public Use
  Company Number: CA-JNJFOC-20210234586

PATIENT
  Age: 48 Year
  Sex: Male

DRUGS (5)
  1. METHOTREXATE. [Concomitant]
     Active Substance: METHOTREXATE
     Indication: ANKYLOSING SPONDYLITIS
  2. LEFLUNOMIDE. [Concomitant]
     Active Substance: LEFLUNOMIDE
     Indication: ANKYLOSING SPONDYLITIS
  3. METHOTREXATE. [Concomitant]
     Active Substance: METHOTREXATE
     Indication: INFLAMMATORY BOWEL DISEASE
     Route: 065
  4. REMICADE [Suspect]
     Active Substance: INFLIXIMAB
     Indication: CROHN^S DISEASE
     Route: 042
     Dates: start: 20190831, end: 20200720
  5. LEFLUNOMIDE. [Concomitant]
     Active Substance: LEFLUNOMIDE
     Indication: INFLAMMATORY BOWEL DISEASE
     Route: 065

REACTIONS (5)
  - Haemophagocytic lymphohistiocytosis [Fatal]
  - Pulmonary alveolar haemorrhage [Fatal]
  - Atrial fibrillation [Unknown]
  - Epstein-Barr virus infection [Unknown]
  - Pulmonary cavitation [Unknown]

NARRATIVE: CASE EVENT DATE: 2020
